FAERS Safety Report 20004079 (Version 3)
Quarter: 2022Q1

REPORT INFORMATION
  Report Type: Report from Study
  Country: US (occurrence: US)
  Receive Date: 20211027
  Receipt Date: 20220113
  Transmission Date: 20220423
  Serious: Yes (Hospitalization)
  Sender: FDA-Public Use
  Company Number: US-PFIZER INC-202101301568

PATIENT
  Age: 60 Year
  Sex: Female

DRUGS (4)
  1. IBRANCE [Suspect]
     Active Substance: PALBOCICLIB
     Indication: Breast cancer female
     Dosage: 125 MG, CYCLIC (DAILY FOR 21 DAYS ON AND 7 DAYS OFF)
     Route: 048
     Dates: start: 20210904, end: 20211003
  2. IBRANCE [Suspect]
     Active Substance: PALBOCICLIB
     Dosage: 125 MG, CYCLIC (DAILY FOR 21 DAYS ON AND 7 DAYS OFF)
     Route: 048
     Dates: start: 20211010
  3. IBRANCE [Suspect]
     Active Substance: PALBOCICLIB
     Dosage: 125 MG, CYCLIC (DAILY FOR 21 DAYS ON AND 7 DAYS OFF)
     Route: 048
     Dates: start: 20210904
  4. FASLODEX [Concomitant]
     Active Substance: FULVESTRANT
     Dosage: UNK
     Route: 030

REACTIONS (12)
  - Hypothyroidism [Recovered/Resolved]
  - Blood sodium decreased [Recovered/Resolved]
  - Blood magnesium decreased [Recovered/Resolved]
  - Blood potassium decreased [Recovered/Resolved]
  - Blood glucose increased [Unknown]
  - Chills [Recovered/Resolved]
  - Pain [Recovered/Resolved]
  - Pyrexia [Recovered/Resolved]
  - White blood cell count decreased [Not Recovered/Not Resolved]
  - Viral infection [Unknown]
  - Alopecia [Unknown]
  - Red blood cell count decreased [Unknown]

NARRATIVE: CASE EVENT DATE: 20210901
